FAERS Safety Report 23629689 (Version 1)
Quarter: 2024Q1

REPORT INFORMATION
  Report Type: Spontaneous
  Country: AU (occurrence: AU)
  Receive Date: 20240314
  Receipt Date: 20240314
  Transmission Date: 20240410
  Serious: Yes (Other)
  Sender: FDA-Public Use
  Company Number: AU-BoehringerIngelheim-2024-BI-014171

PATIENT
  Age: 20 Year
  Sex: Male

DRUGS (1)
  1. CATAPRES [Suspect]
     Active Substance: CLONIDINE HYDROCHLORIDE
     Indication: Product used for unknown indication
     Dosage: CLONIDINE HYDROCHLORIDE

REACTIONS (5)
  - Hypokinesia [Unknown]
  - Hypnagogic hallucination [Unknown]
  - Chest pain [Unknown]
  - Dyspnoea [Unknown]
  - Fall [Unknown]
